FAERS Safety Report 10776182 (Version 1)
Quarter: 2015Q1

REPORT INFORMATION
  Report Type: Spontaneous
  Country: US (occurrence: None)
  Receive Date: 20150205
  Receipt Date: 20150205
  Transmission Date: 20150721
  Serious: No
  Sender: FDA-Public Use
  Company Number: None

PATIENT
  Sex: Female

DRUGS (1)
  1. CARDIZEM [Suspect]
     Active Substance: DILTIAZEM HYDROCHLORIDE
     Dosage: STRENGTH: 30 MG PRESCRIBED BUT?

REACTIONS (4)
  - Unresponsive to stimuli [None]
  - Drug dispensing error [None]
  - Medication error [None]
  - Toxicity to various agents [None]

NARRATIVE: CASE EVENT DATE: 2013
